FAERS Safety Report 8856104 (Version 1)
Quarter: 2012Q4

REPORT INFORMATION
  Report Type: Spontaneous
  Country: US (occurrence: None)
  Receive Date: 20121023
  Receipt Date: 20121023
  Transmission Date: 20130627
  Serious: Yes (Death)
  Sender: FDA-Public Use
  Company Number: None

PATIENT
  Age: 71 Year
  Sex: Female
  Weight: 11.2 kg

DRUGS (1)
  1. ADENOSINE [Suspect]
     Indication: STRESS TEST
     Dates: start: 20120416

REACTIONS (1)
  - Asthma [None]
